FAERS Safety Report 15370669 (Version 2)
Quarter: 2018Q3

REPORT INFORMATION
  Report Type: Spontaneous
  Country: US (occurrence: US)
  Receive Date: 20180911
  Receipt Date: 20180913
  Transmission Date: 20181010
  Serious: Yes (Death)
  Sender: FDA-Public Use
  Company Number: US-PFIZER INC-2018363935

PATIENT
  Age: 53 Year
  Sex: Male

DRUGS (9)
  1. CEFAZOLIN [Concomitant]
     Active Substance: CEFAZOLIN
     Indication: CELLULITIS
     Dosage: UNK
     Route: 042
     Dates: start: 19920102, end: 19920116
  2. CIPROFLOXACIN. [Concomitant]
     Active Substance: CIPROFLOXACIN
     Indication: ENDOCARDITIS ENTEROCOCCAL
     Dosage: UNK
     Dates: start: 1992
  3. CRYOPRECIPITATE [Concomitant]
     Active Substance: CRYOPRECIPITATED ANTIHEMOPHILIC FACTOR (HUMAN)
     Indication: HAEMORRHAGE
     Dosage: UNK
     Dates: start: 19920804
  4. AMPICILLIN SODIUM. [Suspect]
     Active Substance: AMPICILLIN SODIUM
     Indication: ENDOCARDITIS ENTEROCOCCAL
     Dosage: UNK
     Dates: start: 1992
  5. DDAVP [Concomitant]
     Active Substance: DESMOPRESSIN ACETATE
     Indication: HAEMORRHAGE
     Dosage: UNK
     Dates: start: 19920804
  6. VANCOMYCIN HCL [Suspect]
     Active Substance: VANCOMYCIN HYDROCHLORIDE
     Indication: ENDOCARDITIS ENTEROCOCCAL
     Dosage: UNK
     Dates: start: 1992
  7. TEICOPLANIN [Suspect]
     Active Substance: TEICOPLANIN
     Indication: ENDOCARDITIS ENTEROCOCCAL
     Dosage: UNK
     Dates: start: 1992
  8. GENTAMICIN SULFATE. [Suspect]
     Active Substance: GENTAMICIN SULFATE
     Indication: ENDOCARDITIS ENTEROCOCCAL
     Dosage: UNK
     Dates: start: 1992
  9. ESTROGEN [Concomitant]
     Active Substance: ESTROGENS
     Indication: HAEMORRHAGE
     Dosage: UNK
     Dates: start: 19920804

REACTIONS (1)
  - Drug resistance [Fatal]
